FAERS Safety Report 15081290 (Version 2)
Quarter: 2018Q3

REPORT INFORMATION
  Report Type: Spontaneous
  Country: GB (occurrence: GB)
  Receive Date: 20180628
  Receipt Date: 20180703
  Transmission Date: 20181010
  Serious: Yes (Death, Hospitalization, Other)
  Sender: FDA-Public Use
  Company Number: GB-ASTRAZENECA-2018SE83207

PATIENT
  Age: 96 Year
  Sex: Female

DRUGS (3)
  1. BRILIQUE [Suspect]
     Active Substance: TICAGRELOR
     Dosage: 90 MG
     Route: 048
  2. BRILIQUE [Suspect]
     Active Substance: TICAGRELOR
     Dosage: 180 MG
     Route: 048
  3. ASPIRIN. [Concomitant]
     Active Substance: ASPIRIN

REACTIONS (5)
  - Renal failure [Unknown]
  - Death [Fatal]
  - Myocardial infarction [Unknown]
  - Haematuria [Unknown]
  - Internal haemorrhage [Unknown]
